FAERS Safety Report 13043139 (Version 2)
Quarter: 2017Q2

REPORT INFORMATION
  Report Type: Spontaneous
  Country: US (occurrence: US)
  Receive Date: 20161219
  Receipt Date: 20170604
  Transmission Date: 20170830
  Serious: No
  Sender: FDA-Public Use
  Company Number: US-CELGENEUS-USA-2016123453

PATIENT
  Age: 60 Year
  Sex: Male
  Weight: 124.85 kg

DRUGS (4)
  1. OTEZLA [Suspect]
     Active Substance: APREMILAST
     Indication: PSORIASIS
     Dosage: 60MG STARTER PACK
     Route: 048
     Dates: start: 20161025, end: 20161108
  2. FLEXERIL [Concomitant]
     Active Substance: CYCLOBENZAPRINE HYDROCHLORIDE
     Indication: MUSCLE SPASMS
     Dosage: 30 MILLIGRAM
     Route: 065
     Dates: start: 20160202
  3. OTEZLA [Suspect]
     Active Substance: APREMILAST
     Indication: PSORIASIS
  4. DIOVAN [Concomitant]
     Active Substance: VALSARTAN
     Indication: PRODUCT USED FOR UNKNOWN INDICATION
     Dosage: 320-25 MG
     Route: 065
     Dates: start: 20160809

REACTIONS (4)
  - Disturbance in attention [Recovered/Resolved]
  - Headache [Recovered/Resolved]
  - Diarrhoea [Recovered/Resolved]
  - Insomnia [Recovered/Resolved]

NARRATIVE: CASE EVENT DATE: 20161108
